FAERS Safety Report 4792492-3 (Version None)
Quarter: 2005Q4

REPORT INFORMATION
  Report Type: 
  Country: None (occurrence: None)
  Receive Date: 20051010
  Receipt Date: 20051004
  Transmission Date: 20060501
  Serious: Yes (Hospitalization, Disabling)
  Sender: FDA-Public Use
  Company Number: US-MERCK-0510USA03277

PATIENT
  Age: 90 Year
  Sex: Female

DRUGS (5)
  1. FOSAMAX [Suspect]
     Indication: OSTEOPOROSIS
     Route: 048
     Dates: start: 19950101, end: 20050101
  2. FOSAMAX [Suspect]
     Route: 048
     Dates: start: 20050101, end: 20050101
  3. FOSAMAX [Suspect]
     Route: 048
     Dates: start: 20050101, end: 20050101
  4. [THERAPY UNSPECIFIED] [Concomitant]
     Indication: HYPERTENSION
     Route: 065
     Dates: end: 20050101
  5. [THERAPY UNSPECIFIED] [Concomitant]
     Indication: BLOOD CHOLESTEROL INCREASED
     Route: 065
     Dates: end: 20050101

REACTIONS (2)
  - DIZZINESS [None]
  - GASTROINTESTINAL DISORDER [None]
